FAERS Safety Report 5738430-8 (Version None)
Quarter: 2008Q2

REPORT INFORMATION
  Report Type: 
  Country: None (occurrence: None)
  Receive Date: 20080513
  Receipt Date: 20080429
  Transmission Date: 20081010
  Serious: Yes (Hospitalization)
  Sender: FDA-Public Use
  Company Number: 2007-00009

PATIENT
  Age: 48 Year
  Sex: Female

DRUGS (2)
  1. TRELSTAR DEPOT [Suspect]
     Indication: OVARIAN DISORDER
     Dosage: 3.75 MG, INTRAMUSCULAR
     Route: 030
     Dates: start: 20061031, end: 20061128
  2. EXEMESTANE [Suspect]
     Indication: OVARIAN DISORDER
     Dosage: 25 MG, ORAL
     Route: 048
     Dates: start: 20061031, end: 20061212

REACTIONS (5)
  - ACUTE GENERALISED EXANTHEMATOUS PUSTULOSIS [None]
  - DIZZINESS [None]
  - DYSPHAGIA [None]
  - ERYTHEMA MULTIFORME [None]
  - SCAB [None]
